FAERS Safety Report 12853111 (Version 1)
Quarter: 2016Q4

REPORT INFORMATION
  Report Type: Spontaneous
  Country: US (occurrence: US)
  Receive Date: 20161016
  Receipt Date: 20161016
  Transmission Date: 20170207
  Serious: Yes (Other)
  Sender: FDA-Public Use
  Company Number: None

PATIENT
  Age: 37 Year
  Sex: Male

DRUGS (1)
  1. STELARA [Suspect]
     Active Substance: USTEKINUMAB

REACTIONS (3)
  - Extra dose administered [None]
  - Emotional disorder [None]
  - Thinking abnormal [None]

NARRATIVE: CASE EVENT DATE: 20161016
